FAERS Safety Report 5677643-0 (Version None)
Quarter: 2008Q1

REPORT INFORMATION
  Report Type: 
  Country: None (occurrence: None)
  Receive Date: 20080324
  Receipt Date: 20080317
  Transmission Date: 20080703
  Serious: No
  Sender: FDA-Public Use
  Company Number: US-BAXTER-2008BH002416

PATIENT
  Age: 31 Year
  Sex: Female

DRUGS (2)
  1. HEPARIN SODIUM [Suspect]
     Indication: ANTIPHOSPHOLIPID SYNDROME
     Route: 058
     Dates: start: 20080201, end: 20080301
  2. HEPARIN SODIUM [Suspect]
     Indication: COAGULOPATHY
     Route: 058
     Dates: start: 20080201, end: 20080301

REACTIONS (2)
  - ABORTION SPONTANEOUS [None]
  - DRUG EXPOSURE DURING PREGNANCY [None]
